FAERS Safety Report 13870554 (Version 2)
Quarter: 2017Q3

REPORT INFORMATION
  Report Type: Report from Study
  Country: US (occurrence: US)
  Receive Date: 20170816
  Receipt Date: 20170829
  Transmission Date: 20171127
  Serious: Yes (Death, Life-Threatening, Hospitalization)
  Sender: FDA-Public Use
  Company Number: US-CELGENEUS-USA-20170803561

PATIENT
  Age: 76 Year
  Sex: Male
  Weight: 86 kg

DRUGS (58)
  1. METFORMIN [Concomitant]
     Active Substance: METFORMIN HYDROCHLORIDE
     Indication: DIABETES MELLITUS
     Dosage: 2000 MILLIGRAM
     Route: 048
  2. POLYETHYLENE GLYCOL [Concomitant]
     Active Substance: POLYETHYLENE GLYCOLS
     Indication: LAXATIVE SUPPORTIVE CARE
     Dosage: 17 GRAM
     Route: 048
     Dates: start: 20170728
  3. BOOST [Concomitant]
     Active Substance: DIETARY SUPPLEMENT
     Indication: NUTRITIONAL SUPPLEMENTATION
     Dosage: 1 BOTTLE
     Route: 048
     Dates: start: 20170728
  4. SODIUM CHLORIDE. [Concomitant]
     Active Substance: SODIUM CHLORIDE
     Dosage: 1000 MILLILITER
     Route: 065
     Dates: start: 20170810, end: 20170810
  5. SODIUM POLYSTYRENE [Concomitant]
     Active Substance: SODIUM POLYSTYRENE SULFONATE
     Indication: PRODUCT USED FOR UNKNOWN INDICATION
     Dosage: 15G/60ML
     Route: 048
     Dates: start: 20170809, end: 20170809
  6. MORPHINE [Concomitant]
     Active Substance: MORPHINE
     Dosage: 1 MILLIGRAM
     Route: 050
     Dates: start: 20170811, end: 20170811
  7. MORPHINE [Concomitant]
     Active Substance: MORPHINE
     Dosage: 2 MILLIGRAM
     Route: 050
     Dates: start: 20170811, end: 20170811
  8. ABRAXANE [Suspect]
     Active Substance: PACLITAXEL
     Indication: PANCREATIC CARCINOMA
     Dosage: 125 MILLIGRAM/SQ. METER
     Route: 065
     Dates: start: 20170728, end: 20170808
  9. GEMCITABINE [Suspect]
     Active Substance: GEMCITABINE\GEMCITABINE HYDROCHLORIDE
     Indication: PANCREATIC CARCINOMA
     Dosage: 1000 MILLIGRAM/SQ. METER
     Route: 065
     Dates: start: 20170728, end: 20170808
  10. NIVOLUMAB [Suspect]
     Active Substance: NIVOLUMAB
     Indication: PANCREATIC CARCINOMA
     Dosage: 3 MILLIGRAM/KILOGRAM
     Route: 065
     Dates: start: 20170728, end: 20170808
  11. AMITRIPTYLINE [Concomitant]
     Active Substance: AMITRIPTYLINE
     Indication: ANTIDEPRESSANT THERAPY
     Dosage: 50 MILLIGRAM
     Route: 048
     Dates: start: 20170808, end: 20170810
  12. ASPIRIN. [Concomitant]
     Active Substance: ASPIRIN
     Indication: PROPHYLAXIS
     Dosage: 81 MILLIGRAM
     Route: 048
     Dates: start: 20170728
  13. CEPHALEXIN. [Concomitant]
     Active Substance: CEPHALEXIN
     Indication: RASH
     Dosage: 1500 MILLIGRAM
     Route: 048
     Dates: start: 20170804
  14. SODIUM CHLORIDE. [Concomitant]
     Active Substance: SODIUM CHLORIDE
     Indication: PRODUCT USED FOR UNKNOWN INDICATION
     Dosage: 500 MILLILITER
     Route: 065
     Dates: start: 20170809, end: 20170809
  15. SODIUM CHLORIDE. [Concomitant]
     Active Substance: SODIUM CHLORIDE
     Dosage: .45 PERCENT
     Route: 065
     Dates: start: 20170809, end: 20170811
  16. GLYCOPYRROLATE. [Concomitant]
     Active Substance: GLYCOPYRROLATE
     Indication: PRODUCT USED FOR UNKNOWN INDICATION
     Dosage: .2 MILLIGRAM
     Route: 050
     Dates: start: 20170811, end: 20170811
  17. LORAZEPAM. [Concomitant]
     Active Substance: LORAZEPAM
     Indication: PRODUCT USED FOR UNKNOWN INDICATION
     Dosage: .5 MILLIGRAM
     Route: 050
     Dates: start: 20170810, end: 20170810
  18. ALLOPURINOL. [Concomitant]
     Active Substance: ALLOPURINOL
     Indication: GOUT
     Dosage: 300 MILLIGRAM
     Route: 048
     Dates: start: 20170809, end: 20170810
  19. AMLODIPINE [Concomitant]
     Active Substance: AMLODIPINE BESYLATE
     Indication: HYPERTENSION
     Dosage: 7.5 MILLIGRAM
     Route: 048
  20. HEPARIN [Concomitant]
     Active Substance: HEPARIN SODIUM
     Indication: PRODUCT USED FOR UNKNOWN INDICATION
     Dosage: 5000 IU (INTERNATIONAL UNIT)
     Route: 065
     Dates: start: 20170809, end: 20170811
  21. ECONAZOLE [Concomitant]
     Active Substance: ECONAZOLE
     Indication: ANTIFUNGAL TREATMENT
     Dosage: 1 APPLICATION
     Route: 061
  22. MULTIVITAMINS [Concomitant]
     Active Substance: VITAMINS
     Indication: SUPPLEMENTATION THERAPY
     Route: 048
  23. MAGIC MOUTHWASH [Concomitant]
     Active Substance: DIPHENHYDRAMINE HYDROCHLORIDE\LIDOCAINE HYDROCHLORIDE\NYSTATIN
     Indication: PRODUCT USED FOR UNKNOWN INDICATION
     Dosage: 5 MILLILITER
     Route: 048
     Dates: start: 20170808, end: 20170811
  24. MORPHINE [Concomitant]
     Active Substance: MORPHINE
     Dosage: 4 MILLIGRAM
     Route: 050
     Dates: start: 20170810, end: 20170811
  25. MORPHINE [Concomitant]
     Active Substance: MORPHINE
     Dosage: 4 MILLIGRAM
     Route: 050
     Dates: start: 20170811, end: 20170811
  26. METOPROLOL TARTRATE. [Concomitant]
     Active Substance: METOPROLOL TARTRATE
     Indication: PRODUCT USED FOR UNKNOWN INDICATION
     Dosage: 5 MILLIGRAM
     Route: 050
     Dates: start: 20170810, end: 20170810
  27. METOPROLOL TARTRATE. [Concomitant]
     Active Substance: METOPROLOL TARTRATE
     Dosage: 5 MILLIGRAM/MILLILITERS
     Route: 050
     Dates: start: 20170810, end: 20170811
  28. BUTENAFINE HCL [Concomitant]
     Indication: ANTIFUNGAL TREATMENT
     Dosage: 1 APPLICATION
     Route: 061
  29. ONDANSETRON [Concomitant]
     Active Substance: ONDANSETRON
     Indication: NAUSEA
     Dosage: 24 MILLIGRAM
     Route: 048
     Dates: start: 20170728
  30. OXYCODONE [Concomitant]
     Active Substance: OXYCODONE
     Indication: PAIN
     Dosage: 5 MILLIGRAM
     Route: 048
     Dates: start: 20170804
  31. SODIUM CHLORIDE. [Concomitant]
     Active Substance: SODIUM CHLORIDE
     Dosage: 4 MILLILITER
     Route: 065
     Dates: start: 20170811, end: 20170811
  32. ALBUMIN [Concomitant]
     Active Substance: ALBUMIN HUMAN
     Indication: PRODUCT USED FOR UNKNOWN INDICATION
     Dosage: 50 MILLILITER
     Route: 065
  33. NEUPOGEN [Concomitant]
     Active Substance: FILGRASTIM
     Indication: PRODUCT USED FOR UNKNOWN INDICATION
     Route: 065
  34. ALPRAZOLAM. [Concomitant]
     Active Substance: ALPRAZOLAM
     Indication: INSOMNIA
     Dosage: .5 MILLIGRAM
     Route: 048
     Dates: start: 20170726
  35. ASPIRIN. [Concomitant]
     Active Substance: ASPIRIN
     Dosage: 81 MILLIGRAM
     Route: 048
     Dates: start: 20170809, end: 20170810
  36. ATORVASTATIN [Concomitant]
     Active Substance: ATORVASTATIN
     Indication: PROPHYLAXIS
     Dosage: 10 MILLIGRAM
     Route: 048
     Dates: start: 20170808, end: 20170810
  37. ONDANSETRON [Concomitant]
     Active Substance: ONDANSETRON
     Dosage: 4 MILLIGRAM
     Route: 065
     Dates: start: 20170809, end: 20170809
  38. ONDANSETRON [Concomitant]
     Active Substance: ONDANSETRON
     Dosage: 4 MILLIGRAM
     Route: 065
     Dates: start: 20170810, end: 20170810
  39. PROCHLORPERAZINE. [Concomitant]
     Active Substance: PROCHLORPERAZINE
     Indication: NAUSEA
     Dosage: 40 MILLIGRAM
     Route: 048
     Dates: start: 20170728
  40. ALBUTEROL. [Concomitant]
     Active Substance: ALBUTEROL
     Indication: PRODUCT USED FOR UNKNOWN INDICATION
     Dosage: 10 MILLIGRAM
     Route: 065
     Dates: start: 20170809, end: 20170809
  41. HYDROMORPHONE [Concomitant]
     Active Substance: HYDROMORPHONE
     Indication: PRODUCT USED FOR UNKNOWN INDICATION
     Dosage: .2 MILLIGRAM
     Route: 065
     Dates: start: 20170809, end: 20170810
  42. LORAZEPAM. [Concomitant]
     Active Substance: LORAZEPAM
     Dosage: .5 MILLIGRAM
     Route: 050
     Dates: start: 20170811, end: 20170811
  43. CHOLECALCIFEROL [Concomitant]
     Active Substance: CHOLECALCIFEROL
     Indication: SUPPLEMENTATION THERAPY
     Dosage: 2000 IU (INTERNATIONAL UNIT)
     Route: 048
  44. CHOLECALCIFEROL [Concomitant]
     Active Substance: CHOLECALCIFEROL
     Dosage: 1000 IU (INTERNATIONAL UNIT)
     Route: 048
     Dates: start: 20170809, end: 20170810
  45. SODIUM CHLORIDE. [Concomitant]
     Active Substance: SODIUM CHLORIDE
     Dosage: .9 PERCENT
     Route: 065
     Dates: start: 20170811, end: 20170811
  46. NYSTATIN. [Concomitant]
     Active Substance: NYSTATIN
     Indication: PRODUCT USED FOR UNKNOWN INDICATION
     Dosage: 5 MILLILITER
     Route: 048
     Dates: start: 20170808, end: 20170811
  47. MAGIC MOUTHWASH [Concomitant]
     Active Substance: DIPHENHYDRAMINE HYDROCHLORIDE\LIDOCAINE HYDROCHLORIDE\NYSTATIN
     Dosage: 5 MILLILITER
     Route: 048
     Dates: start: 20170811, end: 20170811
  48. ENSURE [Concomitant]
     Active Substance: AMINO ACIDS\DEXTROSE\ELECTROLYTES NOS\SOYBEAN OIL\VITAMINS
     Indication: NUTRITIONAL SUPPLEMENTATION
     Dosage: 1 BOTTLE
     Route: 048
     Dates: start: 20170711
  49. HALOPERIDOL. [Concomitant]
     Active Substance: HALOPERIDOL
     Indication: PRODUCT USED FOR UNKNOWN INDICATION
     Dosage: .5 MILLIGRAM
     Route: 050
     Dates: start: 20170811, end: 20170811
  50. MORPHINE [Concomitant]
     Active Substance: MORPHINE
     Indication: PRODUCT USED FOR UNKNOWN INDICATION
     Dosage: 4 MILLIGRAM
     Route: 050
     Dates: start: 20170810, end: 20170810
  51. MORPHINE [Concomitant]
     Active Substance: MORPHINE
     Dosage: 1 MILLIGRAM
     Route: 050
     Dates: start: 20170811, end: 20170811
  52. FILGRASTIM [Concomitant]
     Active Substance: FILGRASTIM
     Indication: PRODUCT USED FOR UNKNOWN INDICATION
     Dosage: 480 MICROGRAM
     Route: 050
     Dates: start: 20170810, end: 20170810
  53. LORAZEPAM. [Concomitant]
     Active Substance: LORAZEPAM
     Dosage: 1 MILLIGRAM
     Route: 050
     Dates: start: 20170811, end: 20170811
  54. BROMFENAC SODIUM [Concomitant]
     Active Substance: BROMFENAC SODIUM
     Indication: CATARACT
     Dosage: 1 DROPS
     Route: 047
     Dates: start: 201609
  55. PREGABALIN. [Concomitant]
     Active Substance: PREGABALIN
     Indication: NEURALGIA
     Dosage: 100 MILLIGRAM
     Route: 048
     Dates: start: 20170809, end: 20170810
  56. GLYCOPYRROLATE. [Concomitant]
     Active Substance: GLYCOPYRROLATE
     Dosage: .2 MILLIGRAM
     Route: 050
     Dates: start: 20170811, end: 20170811
  57. MORPHINE [Concomitant]
     Active Substance: MORPHINE
     Dosage: 3 MILLIGRAM
     Route: 050
     Dates: start: 20170811, end: 20170811
  58. MORPHINE [Concomitant]
     Active Substance: MORPHINE
     Dosage: 3 MILLIGRAM
     Route: 050
     Dates: start: 20170811, end: 20170811

REACTIONS (1)
  - Sepsis [Fatal]

NARRATIVE: CASE EVENT DATE: 20170808
